FAERS Safety Report 25899625 (Version 1)
Quarter: 2025Q4

REPORT INFORMATION
  Report Type: Spontaneous
  Country: EU (occurrence: EU)
  Receive Date: 20251009
  Receipt Date: 20251009
  Transmission Date: 20260118
  Serious: Yes (Other)
  Sender: CELLTRION
  Company Number: None

PATIENT

DRUGS (1)
  1. INFLIXIMAB [Suspect]
     Active Substance: INFLIXIMAB
     Indication: Folliculitis
     Dosage: 1 TOTAL; 3B3N802-3B3N721
     Route: 042
     Dates: start: 20230626, end: 20240318

REACTIONS (3)
  - Immune-mediated adverse reaction [Recovered/Resolved]
  - Mononeuropathy multiplex [Recovered/Resolved]
  - Intentional product use issue [Unknown]

NARRATIVE: CASE EVENT DATE: 20240318
